FAERS Safety Report 6806477-6 (Version None)
Quarter: 2010Q2

REPORT INFORMATION
  Report Type: 
  Country: None (occurrence: None)
  Receive Date: 20100629
  Receipt Date: 20080326
  Transmission Date: 20101027
  Serious: No
  Sender: FDA-Public Use
  Company Number: US-PFIZER INC-2008024498

PATIENT
  Sex: Male
  Weight: 81.8 kg

DRUGS (6)
  1. VIAGRA [Suspect]
     Indication: ERECTILE DYSFUNCTION
  2. PROTONIX [Concomitant]
  3. ARTHROTEC [Concomitant]
  4. INDERAL [Concomitant]
  5. VITAMINS [Concomitant]
  6. MINERALS NOS [Concomitant]

REACTIONS (1)
  - DRUG INEFFECTIVE [None]
